FAERS Safety Report 21536003 (Version 1)
Quarter: 2022Q4

REPORT INFORMATION
  Report Type: Spontaneous
  Country: US (occurrence: US)
  Receive Date: 20221101
  Receipt Date: 20221101
  Transmission Date: 20230112
  Serious: No
  Sender: FDA-Public Use
  Company Number: US-BIOGEN-2022BI01165249

PATIENT
  Sex: Female

DRUGS (2)
  1. TECFIDERA [Suspect]
     Active Substance: DIMETHYL FUMARATE
     Indication: Multiple sclerosis
     Route: 050
     Dates: end: 2022
  2. TECFIDERA [Suspect]
     Active Substance: DIMETHYL FUMARATE
     Dosage: STARTED ON 240 MG
     Route: 050

REACTIONS (7)
  - Muscle spasticity [Not Recovered/Not Resolved]
  - Cough [Recovered/Resolved]
  - Drug intolerance [Recovered/Resolved]
  - Dehydration [Recovered/Resolved]
  - Abdominal discomfort [Recovered/Resolved]
  - Syncope [Recovered/Resolved]
  - Vomiting [Recovered/Resolved]
